FAERS Safety Report 25337308 (Version 1)
Quarter: 2025Q2

REPORT INFORMATION
  Report Type: Spontaneous
  Country: US (occurrence: US)
  Receive Date: 20250520
  Receipt Date: 20250520
  Transmission Date: 20250717
  Serious: No
  Sender: BAYER HEALTHCARE LLC
  Company Number: US-BAYER-2025A065363

PATIENT
  Age: 70 Year

DRUGS (1)
  1. CLARITIN [Suspect]
     Active Substance: LORATADINE
     Indication: Wheezing
     Route: 048

REACTIONS (2)
  - Product prescribing issue [Unknown]
  - Heart rate increased [Unknown]
